FAERS Safety Report 10062780 (Version 2)
Quarter: 2014Q2

REPORT INFORMATION
  Report Type: Spontaneous
  Country: US (occurrence: US)
  Receive Date: 20140407
  Receipt Date: 20140519
  Transmission Date: 20141212
  Serious: Yes (Life-Threatening, Hospitalization, Disabling)
  Sender: FDA-Public Use
  Company Number: US-BAYER-2014-050823

PATIENT
  Age: 36 Year
  Sex: Female
  Weight: 77.1 kg

DRUGS (34)
  1. YASMIN [Suspect]
     Dosage: UNK
     Dates: start: 20040430, end: 20110513
  2. YAZ [Suspect]
     Dosage: UNK
     Dates: start: 20040430, end: 20110513
  3. ASCORBIC ACID [Concomitant]
     Indication: SICKLE CELL ANAEMIA
     Dosage: 1000 MG, BID
     Dates: start: 20110419, end: 20110509
  4. FOLIC ACID [Concomitant]
     Indication: SICKLE CELL ANAEMIA
     Dosage: UNK
     Dates: start: 1980
  5. SERTRALINE [Concomitant]
     Dosage: UNK
     Dates: start: 2004
  6. ABILIFY [Concomitant]
     Indication: DEPRESSION
     Dosage: 5 MG, DAILY
     Dates: start: 20110419, end: 20110509
  7. AMBIEN [Concomitant]
     Indication: INSOMNIA
     Dosage: UNK
     Dates: start: 20110419, end: 20110509
  8. CELEBREX [Concomitant]
     Indication: ARTHRITIS
     Dosage: 100 MG, BID
     Dates: start: 20110419, end: 20110509
  9. CLARITIN [Concomitant]
     Indication: MULTIPLE ALLERGIES
     Dosage: UNK
     Dates: start: 2010
  10. DILAUDID [Concomitant]
     Indication: SICKLE CELL ANAEMIA
     Dosage: UNK
     Dates: start: 20110419, end: 20110509
  11. ELAVIL [Concomitant]
     Indication: INSOMNIA
     Dosage: UNK
     Dates: start: 2010, end: 2011
  12. ELAVIL [Concomitant]
     Indication: DEPRESSION
     Dosage: 50-100 MG DAILY
     Dates: start: 20110419, end: 20110509
  13. FLEXERIL [Concomitant]
     Indication: MUSCLE SPASMS
     Dosage: 10 MG, BID
     Dates: start: 20110419, end: 20110509
  14. ATARAX [Concomitant]
     Indication: OSTEOPENIA
     Dosage: 50 MG,DAILY
     Dates: start: 20110419, end: 20110509
  15. COLACE [Concomitant]
     Indication: CONSTIPATION
     Dosage: 100-300 MG DAILY
     Dates: start: 20110419, end: 20110509
  16. VITAMIN E [Concomitant]
     Dosage: UNK
     Dates: start: 20110419, end: 20110509
  17. SUDAFED [Concomitant]
     Indication: NASAL CONGESTION
     Dosage: 60 MG, UNK
     Dates: start: 20110419, end: 20110509
  18. FLONASE [Concomitant]
     Indication: MULTIPLE ALLERGIES
     Dosage: UNK
     Dates: start: 2011
  19. CITRACAL [Concomitant]
     Dosage: UNK
  20. DULCOLAX [BISACODYL] [Concomitant]
     Indication: CONSTIPATION
     Dosage: 5-15 MG DAILY
     Dates: start: 20110419, end: 20110509
  21. LEVAQUIN [Concomitant]
     Dosage: UNK
     Dates: start: 20110509
  22. ALBUTEROL [Concomitant]
     Dosage: UNK
     Dates: start: 20110509
  23. PROTONIX [Concomitant]
     Indication: GASTROOESOPHAGEAL REFLUX DISEASE
     Dosage: 40 MG, DAILY
     Dates: start: 20110419, end: 20110509
  24. PRISTIQ [Concomitant]
     Indication: DEPRESSION
     Dosage: UNK
     Dates: start: 20110419, end: 20110509
  25. NEURONTIN [Concomitant]
     Indication: NEURALGIA
     Dosage: 60 MG, TID
     Dates: start: 20110419, end: 20110509
  26. MULTIVITAMIN [Concomitant]
     Dosage: 1 DF, TID
     Dates: start: 20110419, end: 20110509
  27. LYRICA [Concomitant]
     Dosage: 75 MG, UNK
  28. ZOLPIDEM [Concomitant]
     Dosage: 10 MG, UNK
  29. CLONAZEPAM [Concomitant]
     Dosage: 0.5 MG, UNK
  30. MS CONTIN [Concomitant]
     Indication: PAIN
     Dosage: 100 MG, BID
     Dates: start: 20110419, end: 20110509
  31. FENTANYL [Concomitant]
  32. MORPHINE [Concomitant]
  33. VENLAFAXINE [Concomitant]
  34. ADVAIR [Concomitant]

REACTIONS (11)
  - Pulmonary embolism [None]
  - Dyspnoea [None]
  - Fatigue [None]
  - Oxygen saturation decreased [None]
  - Injury [None]
  - Pain [None]
  - General physical health deterioration [None]
  - Anxiety [None]
  - Emotional distress [None]
  - Pain [None]
  - Deformity [None]
